FAERS Safety Report 7371620-X (Version None)
Quarter: 2011Q1

REPORT INFORMATION
  Report Type: 
  Country: None (occurrence: None)
  Receive Date: 20110324
  Receipt Date: 20110315
  Transmission Date: 20110831
  Serious: Yes (Disabling, Other)
  Sender: FDA-Public Use
  Company Number: US-ASTRAZENECA-2011SE07351

PATIENT
  Age: 82 Year
  Sex: Female
  Weight: 63 kg

DRUGS (5)
  1. ARIMIDEX [Suspect]
     Indication: BREAST CANCER
     Route: 048
     Dates: start: 20040101, end: 20090101
  2. ALTACE [Concomitant]
     Indication: HYPERTENSION
  3. COUMADIN [Concomitant]
     Indication: ATRIAL FIBRILLATION
  4. SYNTHROID [Concomitant]
  5. ZOLOFT [Concomitant]

REACTIONS (8)
  - ARTHRITIS [None]
  - PAIN IN EXTREMITY [None]
  - PAIN [None]
  - DRUG DEPENDENCE [None]
  - ACTIVITIES OF DAILY LIVING IMPAIRED [None]
  - HIP FRACTURE [None]
  - ARTHRALGIA [None]
  - PELVIC FRACTURE [None]
